FAERS Safety Report 5969000-4 (Version None)
Quarter: 2008Q4

REPORT INFORMATION
  Report Type: 
  Country: None (occurrence: None)
  Receive Date: 20081126
  Receipt Date: 20081118
  Transmission Date: 20090506
  Serious: Yes (Other)
  Sender: FDA-Public Use
  Company Number: PT-ELI_LILLY_AND_COMPANY-PT200811004685

PATIENT
  Age: 61 Year
  Sex: Female

DRUGS (1)
  1. DULOXETINE HYDROCHLORIDE [Suspect]
     Indication: DEPRESSION
     Dosage: 60 MG, UNKNOWN
     Route: 065
     Dates: start: 20081116, end: 20081101

REACTIONS (12)
  - ABDOMINAL DISCOMFORT [None]
  - BRADYCARDIA [None]
  - DIZZINESS [None]
  - HEADACHE [None]
  - MUSCLE SPASMS [None]
  - NASOPHARYNGITIS [None]
  - NAUSEA [None]
  - RESPIRATORY DISORDER [None]
  - TRISMUS [None]
  - URINARY RETENTION [None]
  - VISION BLURRED [None]
  - VOMITING [None]
